FAERS Safety Report 19035069 (Version 1)
Quarter: 2021Q1

REPORT INFORMATION
  Report Type: Spontaneous
  Country: US (occurrence: US)
  Receive Date: 20210320
  Receipt Date: 20210320
  Transmission Date: 20210420
  Serious: No
  Sender: FDA-Public Use
  Company Number: US-ASTRAZENECA-2021A071246

PATIENT
  Sex: Male
  Weight: 134.3 kg

DRUGS (1)
  1. SYMBICORT [Suspect]
     Active Substance: BUDESONIDE\FORMOTEROL FUMARATE DIHYDRATE
     Indication: LUNG NEOPLASM MALIGNANT
     Dosage: 160/4.5MCG, ONE PUFF A DAY
     Route: 055
     Dates: start: 20201211

REACTIONS (3)
  - Device delivery system issue [Unknown]
  - Feeling abnormal [Unknown]
  - Product dose omission issue [Unknown]
